FAERS Safety Report 5292154-2 (Version None)
Quarter: 2007Q2

REPORT INFORMATION
  Report Type: 
  Country: None (occurrence: None)
  Receive Date: 20070410
  Receipt Date: 20070402
  Transmission Date: 20071010
  Serious: Yes (Hospitalization)
  Sender: FDA-Public Use
  Company Number: JP-JPN-A200701498

PATIENT
  Sex: Male
  Weight: 3.5 kg

DRUGS (3)
  1. PAXIL [Suspect]
  2. HALOPERIDOL [Suspect]
  3. DEPAKENE [Suspect]

REACTIONS (5)
  - DRUG EXPOSURE DURING PREGNANCY [None]
  - INTERCOSTAL RETRACTION [None]
  - IRRITABILITY [None]
  - RESPIRATION ABNORMAL [None]
  - RESPIRATORY DISORDER NEONATAL [None]
